FAERS Safety Report 6617490-6 (Version None)
Quarter: 2010Q1

REPORT INFORMATION
  Report Type: 
  Country: None (occurrence: None)
  Receive Date: 20100302
  Receipt Date: 20100216
  Transmission Date: 20100710
  Serious: Yes (Death, Other)
  Sender: FDA-Public Use
  Company Number: MC201000055

PATIENT

DRUGS (1)
  1. ANGIOMAX [Suspect]

REACTIONS (2)
  - CORONARY REVASCULARISATION [None]
  - MYOCARDIAL INFARCTION [None]
